FAERS Safety Report 24394890 (Version 1)
Quarter: 2024Q4

REPORT INFORMATION
  Report Type: Report from Study
  Country: BR (occurrence: BR)
  Receive Date: 20241004
  Receipt Date: 20241004
  Transmission Date: 20250115
  Serious: Yes (Other)
  Sender: JOHNSON AND JOHNSON
  Company Number: BR-JNJFOC-20240979950

PATIENT
  Age: 60 Year
  Sex: Male
  Weight: 64 kg

DRUGS (2)
  1. GOLIMUMAB [Suspect]
     Active Substance: GOLIMUMAB
     Indication: Rheumatoid arthritis
     Route: 058
     Dates: start: 20240909
  2. GOLIMUMAB [Suspect]
     Active Substance: GOLIMUMAB

REACTIONS (2)
  - Foot fracture [Unknown]
  - Nasopharyngitis [Recovering/Resolving]

NARRATIVE: CASE EVENT DATE: 20240901
